FAERS Safety Report 19879633 (Version 1)
Quarter: 2021Q3

REPORT INFORMATION
  Report Type: Spontaneous
  Country: IN (occurrence: IN)
  Receive Date: 20210924
  Receipt Date: 20210924
  Transmission Date: 20211014
  Serious: Yes (Death, Other)
  Sender: FDA-Public Use
  Company Number: IN-PFIZER INC-202101207135

PATIENT
  Age: 7 Year
  Sex: Male

DRUGS (1)
  1. CYTARABINE. [Suspect]
     Active Substance: CYTARABINE
     Indication: T-CELL TYPE ACUTE LEUKAEMIA
     Dosage: UNK, CYCLIC, TWO CYCLES OF HIGH?DOSE CYTARABINE (I2A) AND REPEAT INDUCTION (RI1)

REACTIONS (5)
  - Endocarditis candida [Fatal]
  - Cellulitis gangrenous [Unknown]
  - Device related sepsis [Unknown]
  - Febrile neutropenia [Recovered/Resolved]
  - Systemic candida [Unknown]
